FAERS Safety Report 9689418 (Version 2)
Quarter: 2013Q4

REPORT INFORMATION
  Report Type: Spontaneous
  Country: US (occurrence: US)
  Receive Date: 20131114
  Receipt Date: 20131125
  Transmission Date: 20140711
  Serious: Yes (Hospitalization, Other)
  Sender: FDA-Public Use
  Company Number: US-GILEAD-2013-0087610

PATIENT
  Age: 49 Year
  Sex: Female

DRUGS (3)
  1. LETAIRIS [Suspect]
     Indication: PULMONARY ARTERIAL HYPERTENSION
     Dosage: 5 MG, QD
     Dates: start: 20130929
  2. WARFARIN [Concomitant]
  3. PORTIA 21 [Concomitant]

REACTIONS (4)
  - Thrombosis [Unknown]
  - Haemorrhagic cyst [Unknown]
  - Eye infection [Unknown]
  - Dry eye [Unknown]
